FAERS Safety Report 20520231 (Version 1)
Quarter: 2022Q1

REPORT INFORMATION
  Report Type: Spontaneous
  Country: GB (occurrence: GB)
  Receive Date: 20220225
  Receipt Date: 20220225
  Transmission Date: 20220424
  Serious: Yes (Other)
  Sender: FDA-Public Use
  Company Number: GB-PFIZER INC-202101512115

PATIENT
  Age: 29 Year
  Sex: Male

DRUGS (2)
  1. PRASUGREL HYDROCHLORIDE [Interacting]
     Active Substance: PRASUGREL HYDROCHLORIDE
     Indication: Product used for unknown indication
     Dosage: 5 MG
  2. COLESTID [Interacting]
     Active Substance: COLESTIPOL HYDROCHLORIDE
     Indication: Product used for unknown indication
     Dosage: UNK

REACTIONS (2)
  - Acute myocardial infarction [Unknown]
  - Drug interaction [Unknown]
